FAERS Safety Report 8548135-6 (Version None)
Quarter: 2012Q3

REPORT INFORMATION
  Report Type: 
  Country: None (occurrence: None)
  Receive Date: 20120730
  Receipt Date: 20120718
  Transmission Date: 20120928
  Serious: Yes (Death, Hospitalization)
  Sender: FDA-Public Use
  Company Number: US-BIOGENIDEC-2012BI020547

PATIENT
  Age: 43 Year
  Sex: Female

DRUGS (9)
  1. VITAMIN D [Concomitant]
  2. CITALOPRAM HYDROBROMIDE [Concomitant]
  3. GABAPENTIN [Concomitant]
  4. TOLTERODINE TARTRATE [Concomitant]
  5. TYSABRI [Suspect]
     Indication: MULTIPLE SCLEROSIS
     Route: 042
     Dates: start: 20080815, end: 20120527
  6. BACLOFEN [Concomitant]
  7. WELLBUTRIN [Concomitant]
  8. CLONAZEPAM [Concomitant]
     Indication: MUSCLE SPASTICITY
  9. MODAFINIL [Concomitant]

REACTIONS (2)
  - PULMONARY EMBOLISM [None]
  - CARDIOGENIC SHOCK [None]
